FAERS Safety Report 8791053 (Version 1)
Quarter: 2012Q4

REPORT INFORMATION
  Report Type: Spontaneous
  Country: US (occurrence: None)
  Receive Date: 20120910
  Receipt Date: 20120910
  Transmission Date: 20130627
  Serious: Yes (Other)
  Sender: FDA-Public Use
  Company Number: A0992127A

PATIENT
  Age: 65 Year
  Sex: Female

DRUGS (1)
  1. MICONAZOLE NITRATE [Suspect]
     Indication: RASH

REACTIONS (5)
  - Discomfort [None]
  - Asthma [None]
  - Expired drug administered [None]
  - Hypersensitivity [None]
  - Product odour abnormal [None]
